FAERS Safety Report 9323657 (Version 2)
Quarter: 2013Q2

REPORT INFORMATION
  Report Type: Report from Study
  Country: AU (occurrence: AU)
  Receive Date: 20130603
  Receipt Date: 20130619
  Transmission Date: 20140414
  Serious: Yes (Hospitalization, Other)
  Sender: FDA-Public Use
  Company Number: PHHY2013AU054498

PATIENT
  Age: 44 Year
  Sex: Male

DRUGS (4)
  1. CLOZARIL [Suspect]
     Indication: SCHIZOPHRENIA
     Dosage: 75 MG, DAILY
     Route: 048
     Dates: start: 20130515, end: 20130522
  2. NAPROXEN [Concomitant]
     Indication: ANKYLOSING SPONDYLITIS
     Dosage: 1 G, DAILY
     Route: 048
  3. VENLAFAXINE [Concomitant]
     Dosage: 150 MG, DAILY NOCTE
     Route: 048
  4. PALIPERIDONE [Concomitant]
     Indication: SCHIZOPHRENIA
     Dosage: 150 MG, DAILY

REACTIONS (4)
  - Drug prescribing error [Recovered/Resolved]
  - Dystonia [Recovered/Resolved]
  - Neuroleptic malignant syndrome [Recovered/Resolved]
  - Blood creatine phosphokinase increased [Unknown]
